FAERS Safety Report 4879779-0 (Version None)
Quarter: 2006Q1

REPORT INFORMATION
  Report Type: 
  Country: None (occurrence: None)
  Receive Date: 20060113
  Receipt Date: 20060105
  Transmission Date: 20060701
  Serious: Yes (Hospitalization)
  Sender: FDA-Public Use
  Company Number: FR-GLAXOSMITHKLINE-B0405489A

PATIENT
  Age: 40 Year
  Sex: Female

DRUGS (8)
  1. COMBIVIR [Suspect]
     Indication: HIV INFECTION
     Dosage: 1TAB TWICE PER DAY
     Route: 048
     Dates: start: 20050507, end: 20051013
  2. BACTRIM [Suspect]
     Indication: HIV INFECTION
     Dosage: 1TAB PER DAY
     Route: 048
     Dates: start: 20050507, end: 20051013
  3. NORVIR [Concomitant]
     Indication: HIV INFECTION
     Dosage: 100MG PER DAY
     Route: 048
     Dates: start: 20050507
  4. LEXOMIL [Concomitant]
     Indication: ANXIETY
     Dosage: 1TAB PER DAY
     Route: 048
  5. RISPERDAL [Concomitant]
     Indication: SCHIZOAFFECTIVE DISORDER
     Route: 048
     Dates: start: 20051013, end: 20051013
  6. SUBUTEX [Concomitant]
     Indication: DRUG DEPENDENCE
     Dosage: 16MG PER DAY
     Route: 060
     Dates: start: 20051013
  7. REYATAZ [Concomitant]
     Route: 048
  8. DEPAKENE [Concomitant]
     Route: 048

REACTIONS (3)
  - LUNG DISORDER [None]
  - NEUTROPENIA [None]
  - PYREXIA [None]
